FAERS Safety Report 10444916 (Version 2)
Quarter: 2014Q3

REPORT INFORMATION
  Report Type: Report from Study
  Country: MX (occurrence: MX)
  Receive Date: 20140910
  Receipt Date: 20140924
  Transmission Date: 20150326
  Serious: Yes (Other)
  Sender: FDA-Public Use
  Company Number: PHHY2014MX108592

PATIENT
  Age: 61 Year
  Sex: Male

DRUGS (6)
  1. ONBREZ [Suspect]
     Active Substance: INDACATEROL
     Indication: BRONCHIAL DISORDER
     Dosage: 1 DF (300 UG) DAILY
     Route: 055
     Dates: start: 201302
  2. ONBREZ [Suspect]
     Active Substance: INDACATEROL
     Indication: CHRONIC OBSTRUCTIVE PULMONARY DISEASE
  3. SPIRIVA [Concomitant]
     Active Substance: TIOTROPIUM BROMIDE MONOHYDRATE
     Indication: BRONCHIAL DISORDER
     Dosage: 1 DF, DAILY
     Dates: start: 2006
  4. COMBIVENT [Concomitant]
     Active Substance: ALBUTEROL SULFATE\IPRATROPIUM BROMIDE
     Indication: PROPHYLAXIS
     Dosage: UNK UKN, UNK (3 OR 4 DF DAILY)
     Dates: start: 2013
  5. DAXAS [Concomitant]
     Active Substance: ROFLUMILAST
     Indication: CHRONIC OBSTRUCTIVE PULMONARY DISEASE
     Dosage: 1 DF, UNK (DAILY)
     Dates: start: 201402
  6. PERINDOPRIL [Concomitant]
     Active Substance: PERINDOPRIL
     Indication: BLOOD PRESSURE
     Dosage: 1 DF, DAILY
     Dates: start: 201402

REACTIONS (6)
  - Gait disturbance [Not Recovered/Not Resolved]
  - Concomitant disease aggravated [Unknown]
  - Depression [Not Recovered/Not Resolved]
  - Activities of daily living impaired [Not Recovered/Not Resolved]
  - Bronchitis chronic [Not Recovered/Not Resolved]
  - Amnesia [Not Recovered/Not Resolved]

NARRATIVE: CASE EVENT DATE: 201302
